FAERS Safety Report 9935381 (Version 1)
Quarter: 2014Q1

REPORT INFORMATION
  Report Type: Spontaneous
  Country: US (occurrence: US)
  Receive Date: 20140228
  Receipt Date: 20140228
  Transmission Date: 20141002
  Serious: No
  Sender: FDA-Public Use
  Company Number: US-PFIZER INC-2014055783

PATIENT
  Age: 57 Year
  Sex: Female
  Weight: 101.59 kg

DRUGS (5)
  1. ATORVASTATIN CALCIUM [Suspect]
     Indication: BLOOD CHOLESTEROL INCREASED
     Dosage: 40 MG, ONCE A DAY
     Route: 048
     Dates: start: 201312, end: 20140225
  2. CYMBALTA [Concomitant]
     Dosage: 60 MG, UNK
  3. NEXIUM [Concomitant]
     Dosage: 40 MG, UNK
  4. AMITRIPTYLINE [Concomitant]
     Dosage: 75 MG, UNK
  5. METFORMIN [Concomitant]
     Dosage: 1000 MG, UNK

REACTIONS (2)
  - Muscle spasms [Unknown]
  - Pain in extremity [Unknown]
